FAERS Safety Report 12240349 (Version 2)
Quarter: 2016Q2

REPORT INFORMATION
  Report Type: Spontaneous
  Country: US (occurrence: US)
  Receive Date: 20160405
  Receipt Date: 20160413
  Transmission Date: 20160815
  Serious: No
  Sender: FDA-Public Use
  Company Number: US-PFIZER INC-2016148736

PATIENT
  Age: 66 Year
  Sex: Male
  Weight: 78.9 kg

DRUGS (1)
  1. LIPITOR [Suspect]
     Active Substance: ATORVASTATIN CALCIUM
     Indication: BLOOD CHOLESTEROL ABNORMAL
     Dosage: 10 MG, 1X/DAY (20MG TABLET, HALF, ONCE A DAY AT NIGHT)
     Route: 048
     Dates: start: 201412, end: 201601

REACTIONS (1)
  - Arthralgia [Unknown]
